FAERS Safety Report 18475195 (Version 1)
Quarter: 2020Q4

REPORT INFORMATION
  Report Type: Spontaneous
  Country: OM (occurrence: OM)
  Receive Date: 20201106
  Receipt Date: 20201106
  Transmission Date: 20210114
  Serious: Yes (Other)
  Sender: FDA-Public Use
  Company Number: OM-PRINSTON PHARMACEUTICAL INC.-2020PRN00371

PATIENT
  Age: 3 Year
  Sex: Female

DRUGS (3)
  1. METFORMIN HYDROCHLORIDE. [Suspect]
     Active Substance: METFORMIN HYDROCHLORIDE
     Dosage: 250 MG, 2X/DAY (40 MG/KG)
     Route: 065
  2. METFORMIN HYDROCHLORIDE. [Suspect]
     Active Substance: METFORMIN HYDROCHLORIDE
     Indication: STEM CELL THERAPY
     Dosage: 20 MG/KG
     Route: 065
  3. UNSPECIFIED DIURETICS [Concomitant]
     Route: 065

REACTIONS (4)
  - Electrocardiogram T wave peaked [Recovered/Resolved]
  - Hyperkalaemia [Recovered/Resolved]
  - Bradycardia [Recovered/Resolved]
  - Lactic acidosis [Recovered/Resolved]
